FAERS Safety Report 5713538-1 (Version None)
Quarter: 2008Q2

REPORT INFORMATION
  Report Type: 
  Country: None (occurrence: None)
  Receive Date: 20080422
  Receipt Date: 20080410
  Transmission Date: 20081010
  Serious: Yes (Other)
  Sender: FDA-Public Use
  Company Number: TR-PFIZER INC-2008033148

PATIENT
  Sex: Male
  Weight: 62 kg

DRUGS (3)
  1. PREGABALIN [Suspect]
     Indication: NEURALGIA
     Route: 048
  2. CANDESARTAN CILEXETIL [Concomitant]
  3. ACETYLSALICYLIC ACID SRT [Concomitant]

REACTIONS (1)
  - HYPONATRAEMIA [None]
